FAERS Safety Report 20411398 (Version 1)
Quarter: 2022Q1

REPORT INFORMATION
  Report Type: Report from Study
  Country: US (occurrence: US)
  Receive Date: 20220201
  Receipt Date: 20220201
  Transmission Date: 20220423
  Serious: No
  Sender: FDA-Public Use
  Company Number: US-Ipsen Biopharmaceuticals, Inc.-2022-01528

PATIENT
  Age: 64 Year
  Sex: Male

DRUGS (1)
  1. SOMATULINE DEPOT [Suspect]
     Active Substance: LANREOTIDE ACETATE
     Indication: Carcinoid tumour of the duodenum
     Route: 058
     Dates: start: 202110

REACTIONS (6)
  - Agitation [Unknown]
  - Poor quality sleep [Unknown]
  - Stress [Unknown]
  - Coordination abnormal [Unknown]
  - Arthritis [Unknown]
  - Nerve injury [Unknown]
